FAERS Safety Report 15604375 (Version 2)
Quarter: 2018Q4

REPORT INFORMATION
  Report Type: Spontaneous
  Country: FI (occurrence: FI)
  Receive Date: 20181110
  Receipt Date: 20181207
  Transmission Date: 20190205
  Serious: Yes (Hospitalization)
  Sender: FDA-Public Use
  Company Number: FI-B.I. PHARMACEUTICALS,INC./RIDGEFIELD-2018-BI-053899

PATIENT
  Age: 51 Year
  Sex: Male
  Weight: 159 kg

DRUGS (9)
  1. INSULIN GLARGINE [Concomitant]
     Active Substance: INSULIN GLARGINE
     Route: 065
     Dates: start: 20180413
  2. METFORMIN [Concomitant]
     Active Substance: METFORMIN HYDROCHLORIDE
     Indication: TYPE 2 DIABETES MELLITUS
     Route: 065
     Dates: start: 201807
  3. SYNJARDY [Suspect]
     Active Substance: EMPAGLIFLOZIN\METFORMIN HYDROCHLORIDE
     Indication: TYPE 2 DIABETES MELLITUS
     Dosage: UNIT DOSE: 12,5/1000 MILLIGRAM; DAILY DOSE: 25MG/2000MG
     Route: 065
     Dates: start: 20180329, end: 201807
  4. LERKANIDIPINE [Concomitant]
     Indication: PRODUCT USED FOR UNKNOWN INDICATION
     Route: 065
  5. INSULIN GLARGINE [Concomitant]
     Active Substance: INSULIN GLARGINE
     Indication: PRODUCT USED FOR UNKNOWN INDICATION
     Dosage: STRENGTH: 100 U/ML
     Route: 065
     Dates: start: 2007, end: 201804
  6. RAMIPRIL. [Concomitant]
     Active Substance: RAMIPRIL
     Indication: PRODUCT USED FOR UNKNOWN INDICATION
     Route: 065
  7. ASA [Concomitant]
     Active Substance: ASPIRIN
     Indication: PRODUCT USED FOR UNKNOWN INDICATION
     Route: 065
  8. SYNJARDY [Suspect]
     Active Substance: EMPAGLIFLOZIN\METFORMIN HYDROCHLORIDE
     Dosage: UNIT AND DAILY DOSE: 12.5/1000 MILLIGRAM
     Route: 065
     Dates: start: 201807, end: 20180803
  9. AMOXICILLIN. [Concomitant]
     Active Substance: AMOXICILLIN
     Indication: SINUSITIS
     Route: 065

REACTIONS (4)
  - Ketoacidosis [Recovered/Resolved]
  - Ketoacidosis [Recovered/Resolved]
  - Ketoacidosis [Recovered/Resolved]
  - Ketoacidosis [Recovered/Resolved]

NARRATIVE: CASE EVENT DATE: 20180413
